FAERS Safety Report 9883379 (Version 5)
Quarter: 2014Q2

REPORT INFORMATION
  Report Type: Spontaneous
  Country: US (occurrence: US)
  Receive Date: 20140210
  Receipt Date: 20140408
  Transmission Date: 20141212
  Serious: Yes (Hospitalization)
  Sender: FDA-Public Use
  Company Number: US-BIOGENIDEC-2014BI009721

PATIENT
  Age: 52 Year
  Sex: Female

DRUGS (2)
  1. AVONEX [Suspect]
     Indication: MULTIPLE SCLEROSIS
     Route: 030
     Dates: start: 20130405, end: 20130509
  2. AVONEX [Suspect]
     Indication: MULTIPLE SCLEROSIS
     Route: 030
     Dates: start: 20130510

REACTIONS (9)
  - Urinary tract infection [Recovered/Resolved]
  - Nephrolithiasis [Recovered/Resolved]
  - Fall [Recovered/Resolved]
  - Coagulopathy [Unknown]
  - Cerebral haemorrhage [Recovered/Resolved]
  - Hypoaesthesia [Unknown]
  - Head injury [Recovered/Resolved]
  - Sepsis [Recovered/Resolved]
  - Alopecia [Recovered/Resolved]
